FAERS Safety Report 4514858-9 (Version None)
Quarter: 2004Q4

REPORT INFORMATION
  Report Type: 
  Country: None (occurrence: None)
  Receive Date: 20041126
  Receipt Date: 20041119
  Transmission Date: 20050328
  Serious: Yes (Hospitalization)
  Sender: FDA-Public Use
  Company Number: 2004-11-1076

PATIENT
  Age: 73 Year
  Sex: Female

DRUGS (6)
  1. GENTALYN (GENTAMICIN SULFATE) INJECTABLE SOLUTION [Suspect]
     Indication: SEPSIS
     Dosage: 240 MG QD INTRAVENOUS
     Route: 042
     Dates: start: 20040923, end: 20040924
  2. NADROPARINE CALCIUM [Concomitant]
  3. MOTILIUM [Concomitant]
  4. OMEPRAZOLE [Concomitant]
  5. GLYBURIDE [Concomitant]
  6. ACETAMINOPHEN [Concomitant]

REACTIONS (1)
  - ERYTHEMA [None]
